FAERS Safety Report 24030953 (Version 2)
Quarter: 2024Q3

REPORT INFORMATION
  Report Type: Other
  Country: US (occurrence: US)
  Receive Date: 20240628
  Receipt Date: 20240717
  Transmission Date: 20241017
  Serious: No
  Sender: UROVANT SCIENCES
  Company Number: US-UROVANT SCIENCES GMBH-202406-URV-000944

PATIENT
  Sex: Female

DRUGS (1)
  1. GEMTESA [Suspect]
     Active Substance: VIBEGRON
     Indication: Product used for unknown indication
     Dosage: UNK
     Route: 065

REACTIONS (3)
  - Fall [Unknown]
  - Lower limb fracture [Unknown]
  - Spinal disorder [Unknown]
